FAERS Safety Report 9719901 (Version 1)
Quarter: 2013Q4

REPORT INFORMATION
  Report Type: Spontaneous
  Country: AT (occurrence: AT)
  Receive Date: 20131128
  Receipt Date: 20131128
  Transmission Date: 20140711
  Serious: Yes (Death)
  Sender: FDA-Public Use
  Company Number: AT-CELGENEUS-009-21880-13113337

PATIENT
  Age: 13 Year
  Sex: Male

DRUGS (2)
  1. REVLIMID [Suspect]
     Indication: HAEMANGIOPERICYTOMA
     Route: 048
  2. REVLIMID [Suspect]
     Indication: OFF LABEL USE

REACTIONS (1)
  - Haemangiopericytoma [Fatal]
